FAERS Safety Report 8583602-0 (Version None)
Quarter: 2012Q3

REPORT INFORMATION
  Report Type: 
  Country: None (occurrence: None)
  Receive Date: 20120809
  Receipt Date: 20120730
  Transmission Date: 20120928
  Serious: Yes (Hospitalization)
  Sender: FDA-Public Use
  Company Number: AT-BRISTOL-MYERS SQUIBB COMPANY-16816746

PATIENT
  Age: 39 Year
  Sex: Female

DRUGS (5)
  1. HALOPERIDOL [Suspect]
     Indication: PSYCHOTIC DISORDER
     Dosage: DOSE INCREASED TO 7.5MG THEN REDUCED TO 3MG
  2. ARIPIPRAZOLE [Suspect]
     Indication: PSYCHOTIC DISORDER
     Dosage: DOSE INCREASED TO 30MG/D
  3. VENLAFAXINE HCL [Suspect]
     Indication: DEPRESSED MOOD
  4. RISPERIDONE [Suspect]
     Indication: PSYCHOTIC DISORDER
  5. MIRTAZAPINE [Suspect]

REACTIONS (1)
  - PSYCHOTIC DISORDER [None]
